FAERS Safety Report 22722916 (Version 3)
Quarter: 2024Q2

REPORT INFORMATION
  Report Type: Spontaneous
  Country: FR (occurrence: FR)
  Receive Date: 20230719
  Receipt Date: 20240404
  Transmission Date: 20240716
  Serious: Yes (Disabling, Other)
  Sender: FDA-Public Use
  Company Number: None

PATIENT
  Age: 43 Year
  Sex: Male
  Weight: 69 kg

DRUGS (3)
  1. COSENTYX [Suspect]
     Active Substance: SECUKINUMAB
     Indication: Ankylosing spondylitis
     Dosage: 1050 MG (TOTAL)
     Route: 030
     Dates: start: 20220826, end: 20221220
  2. NAPROXEN [Suspect]
     Active Substance: NAPROXEN
     Indication: Ankylosing spondylitis
     Dosage: 1100 MG, QD
     Route: 048
     Dates: start: 202110, end: 202209
  3. BRINTELLIX [Concomitant]
     Active Substance: VORTIOXETINE HYDROBROMIDE
     Indication: Product used for unknown indication
     Dosage: UNK
     Route: 065

REACTIONS (1)
  - Disseminated tuberculosis [Recovered/Resolved with Sequelae]

NARRATIVE: CASE EVENT DATE: 20221020
